FAERS Safety Report 14126968 (Version 1)
Quarter: 2017Q4

REPORT INFORMATION
  Report Type: Spontaneous
  Country: BR (occurrence: BR)
  Receive Date: 20171026
  Receipt Date: 20171026
  Transmission Date: 20180321
  Serious: Yes (Death)
  Sender: FDA-Public Use
  Company Number: BR-AMGEN-BRASP2013049666

PATIENT
  Age: 69 Year
  Sex: Male
  Weight: 103 kg

DRUGS (5)
  1. ATORVASTATIN [Concomitant]
     Active Substance: ATORVASTATIN
     Indication: CARDIAC DISORDER
     Dosage: 20 MG, 1X/DAY
  2. AAS INFANTIL [Concomitant]
     Active Substance: ASPIRIN
     Indication: CARDIAC DISORDER
     Dosage: UNSPECIFIED DOSE, 1X/DAY
  3. ENBREL [Suspect]
     Active Substance: ETANERCEPT
     Indication: ANKYLOSING SPONDYLITIS
     Dosage: 50 MG, WEEKLY
     Route: 058
     Dates: start: 2012
  4. VASTAREL [Concomitant]
     Active Substance: TRIMETAZIDINE DIHYDROCHLORIDE
     Indication: CARDIAC DISORDER
     Dosage: 35 MG, 2X/DAY
  5. CARVEDILOL. [Concomitant]
     Active Substance: CARVEDILOL
     Indication: CARDIAC DISORDER
     Dosage: UNK

REACTIONS (5)
  - Influenza [Unknown]
  - Needle issue [Unknown]
  - Death [Fatal]
  - Dysphonia [Unknown]
  - Injection site discomfort [Unknown]

NARRATIVE: CASE EVENT DATE: 20130709
